FAERS Safety Report 6997314-8 (Version None)
Quarter: 2010Q3

REPORT INFORMATION
  Report Type: 
  Country: None (occurrence: None)
  Receive Date: 20100918
  Receipt Date: 20090930
  Transmission Date: 20110219
  Serious: No
  Sender: FDA-Public Use
  Company Number: US-WYE-H11362209

PATIENT
  Sex: Female
  Weight: 41.77 kg

DRUGS (1)
  1. PRISTIQ [Suspect]
     Indication: DEPRESSION
     Route: 048
     Dates: start: 20090901

REACTIONS (4)
  - ABDOMINAL DISCOMFORT [None]
  - APATHY [None]
  - FATIGUE [None]
  - FLATULENCE [None]
